FAERS Safety Report 7430500-1 (Version None)
Quarter: 2011Q2

REPORT INFORMATION
  Report Type: 
  Country: None (occurrence: None)
  Receive Date: 20110421
  Receipt Date: 20100803
  Transmission Date: 20111010
  Serious: No
  Sender: FDA-Public Use
  Company Number: US-ASTRAZENECA-2010SE36331

PATIENT
  Age: 65 Year
  Sex: Female
  Weight: 68 kg

DRUGS (8)
  1. LEVOXYL [Concomitant]
     Indication: THYROID DISORDER
  2. TOPIRAMATE [Concomitant]
     Indication: MIGRAINE
  3. ALLONDRANATE [Concomitant]
  4. METOPROLOL SUCCINATE [Suspect]
     Indication: MIGRAINE
     Dosage: DAILY
     Route: 048
     Dates: start: 20080201
  5. TAMOXIFEN [Concomitant]
     Indication: BREAST CANCER
  6. CORTISONE NASAL SPRAY [Concomitant]
     Indication: MULTIPLE ALLERGIES
  7. ZOCOR [Concomitant]
  8. TEARS OTC EYE DROPS [Concomitant]
     Indication: DRY EYE

REACTIONS (7)
  - DRY EYE [None]
  - THERAPY CESSATION [None]
  - THYROID DISORDER [None]
  - WHITE BLOOD CELL COUNT DECREASED [None]
  - WHEEZING [None]
  - LARYNGOSPASM [None]
  - BRONCHOSPASM [None]
